FAERS Safety Report 25372412 (Version 3)
Quarter: 2025Q2

REPORT INFORMATION
  Report Type: Report from Study
  Country: US (occurrence: US)
  Receive Date: 20250529
  Receipt Date: 20250606
  Transmission Date: 20250716
  Serious: Yes (Hospitalization, Other)
  Sender: ABBVIE
  Company Number: US-ABBVIE-6303493

PATIENT
  Age: 36 Year
  Sex: Male

DRUGS (2)
  1. HUMIRA [Suspect]
     Active Substance: ADALIMUMAB
     Indication: Colitis ulcerative
     Dosage: LAST ADMIN DATE 2024?FORM STRENGTH: 40 MG
     Route: 058
     Dates: start: 20240129
  2. HUMIRA [Suspect]
     Active Substance: ADALIMUMAB
     Dosage: FORM STRENGTH: 40 MG?SOLUTION FOR INJECTION IN PRE-FILLED PEN
     Route: 058
     Dates: start: 202404

REACTIONS (4)
  - Gallbladder disorder [Unknown]
  - Gastrointestinal disorder [Recovering/Resolving]
  - Colitis ulcerative [Recovering/Resolving]
  - Drug ineffective [Not Recovered/Not Resolved]

NARRATIVE: CASE EVENT DATE: 20250527
